FAERS Safety Report 12115699 (Version 1)
Quarter: 2016Q1

REPORT INFORMATION
  Report Type: Spontaneous
  Country: US (occurrence: US)
  Receive Date: 20160225
  Receipt Date: 20160225
  Transmission Date: 20160526
  Serious: No
  Sender: FDA-Public Use
  Company Number: US-GLAXOSMITHKLINE-US2016026936

PATIENT
  Age: 35 Year
  Sex: Female

DRUGS (1)
  1. NICORETTE [Suspect]
     Active Substance: NICOTINE
     Indication: SMOKING CESSATION THERAPY
     Dosage: 2 MG, 200CT, UNK
     Dates: start: 20160120, end: 20160215

REACTIONS (3)
  - Headache [Unknown]
  - Malaise [Unknown]
  - Drug ineffective [Unknown]
